FAERS Safety Report 16177680 (Version 1)
Quarter: 2019Q2

REPORT INFORMATION
  Report Type: Spontaneous
  Country: DE (occurrence: DE)
  Receive Date: 20190410
  Receipt Date: 20190410
  Transmission Date: 20190711
  Serious: Yes (Hospitalization)
  Sender: FDA-Public Use
  Company Number: DE-AUROBINDO-AUR-APL-2019-018827

PATIENT

DRUGS (1)
  1. CEFUROXIME. [Suspect]
     Active Substance: CEFUROXIME
     Indication: NASOPHARYNGITIS
     Dosage: UNK
     Route: 065

REACTIONS (1)
  - Gastroenteritis [Recovered/Resolved]

NARRATIVE: CASE EVENT DATE: 20181117
